FAERS Safety Report 6759932-1 (Version None)
Quarter: 2010Q2

REPORT INFORMATION
  Report Type: 
  Country: None (occurrence: None)
  Receive Date: 20100608
  Receipt Date: 20100531
  Transmission Date: 20101027
  Serious: Yes (Hospitalization)
  Sender: FDA-Public Use
  Company Number: FR-WYE-G06207610

PATIENT
  Sex: Male

DRUGS (6)
  1. EFFEXOR XR [Suspect]
     Dosage: 150 MG TOTAL DAILY
     Route: 048
     Dates: start: 20090101, end: 20100501
  2. EFFEXOR XR [Suspect]
     Route: 048
     Dates: start: 20100501, end: 20100531
  3. EFFEXOR XR [Suspect]
     Route: 048
     Dates: start: 20100601
  4. AMITRIPTYLINE HCL [Concomitant]
     Indication: INSOMNIA
     Dosage: UNKNOWN
  5. ZOLPIDEM [Concomitant]
     Indication: INSOMNIA
     Dosage: UNKNOWN
  6. ATHYMIL [Concomitant]
     Dosage: UNKNOWN

REACTIONS (5)
  - DRUG WITHDRAWAL SYNDROME [None]
  - FALL [None]
  - FEELING ABNORMAL [None]
  - POLYNEUROPATHY [None]
  - TREMOR [None]
